FAERS Safety Report 22625098 (Version 2)
Quarter: 2023Q2

REPORT INFORMATION
  Report Type: Spontaneous
  Country: BR (occurrence: BR)
  Receive Date: 20230621
  Receipt Date: 20230622
  Transmission Date: 20230721
  Serious: Yes (Other)
  Sender: FDA-Public Use
  Company Number: BR-GE HEALTHCARE-2023CSU004369

PATIENT
  Age: 62 Year
  Sex: Female
  Weight: 78 kg

DRUGS (20)
  1. OMNIPAQUE [Suspect]
     Active Substance: IOHEXOL
     Indication: Therapeutic embolisation
     Dosage: 300 ML, SINGLE
     Route: 042
     Dates: start: 20230523, end: 20230523
  2. OMNIPAQUE [Suspect]
     Active Substance: IOHEXOL
     Indication: Arteriovenous fistula
  3. REMIFENTANIL [Concomitant]
     Active Substance: REMIFENTANIL
     Indication: Induction of anaesthesia
     Dosage: UNK
     Route: 042
     Dates: start: 20230523, end: 20230523
  4. PROPOFOL [Concomitant]
     Active Substance: PROPOFOL
     Indication: Induction of anaesthesia
     Dosage: 80 MG, SINGLE
     Route: 042
     Dates: start: 20230523, end: 20230523
  5. ROCURONIUM [Concomitant]
     Active Substance: ROCURONIUM BROMIDE
     Indication: Induction of anaesthesia
     Dosage: 70 MG, SINGLE
     Route: 042
     Dates: start: 20230523, end: 20230523
  6. SEVOFLURANE [Concomitant]
     Active Substance: SEVOFLURANE
     Indication: Maintenance of anaesthesia
     Dosage: UNK, SINGLE
     Route: 050
     Dates: start: 20230523, end: 20230523
  7. EPHEDRINE [Concomitant]
     Active Substance: EPHEDRINE
     Indication: Hypotension
     Dosage: 50MG IN 5MIN
     Route: 042
     Dates: start: 20230523, end: 20230523
  8. PHENYLEPHRINE [Concomitant]
     Active Substance: PHENYLEPHRINE HYDROCHLORIDE
     Indication: Hypotension
     Dosage: 10MG/SF 250ML
     Route: 042
     Dates: start: 20230523, end: 20230523
  9. DIPYRONE [Concomitant]
     Active Substance: DIPYRONE
     Indication: Anaesthesia
     Dosage: 2 GM, SINGLE
     Route: 042
     Dates: start: 20230523, end: 20230523
  10. PARECOXIB [Concomitant]
     Active Substance: PARECOXIB
     Indication: Anaesthesia
     Dosage: UNK
     Route: 042
     Dates: start: 20230523, end: 20230523
  11. DEXAMETHASONE [Concomitant]
     Active Substance: DEXAMETHASONE
     Indication: Anaesthesia
     Dosage: UNK
     Route: 042
     Dates: start: 20230523, end: 20230523
  12. DROPERIDOL [Concomitant]
     Active Substance: DROPERIDOL
     Indication: Anaesthesia
     Dosage: UNK
     Route: 042
     Dates: start: 20230523, end: 20230523
  13. ONDANSETRON [Concomitant]
     Active Substance: ONDANSETRON
     Indication: Anaesthesia
     Dosage: UNK
     Route: 042
     Dates: start: 20230523, end: 20230523
  14. CEFAZOLIN [Concomitant]
     Active Substance: CEFAZOLIN
     Indication: Anaesthesia
     Dosage: UNK
     Route: 042
     Dates: start: 20230523, end: 20230523
  15. BENICAR [Concomitant]
     Active Substance: OLMESARTAN MEDOXOMIL
     Dosage: 20 MG
  16. HYDROCHLOROTHIAZIDE [Concomitant]
     Active Substance: HYDROCHLOROTHIAZIDE
     Dosage: 12.5 MG
  17. AMLODIPINE [Concomitant]
     Active Substance: AMLODIPINE BESYLATE
     Dosage: UNK
  18. GLIFAGE [Concomitant]
     Active Substance: METFORMIN HYDROCHLORIDE
     Dosage: UNK
  19. SIMVASTATIN [Concomitant]
     Active Substance: SIMVASTATIN
     Dosage: UNK
  20. BROMAZEPAM [Concomitant]
     Active Substance: BROMAZEPAM
     Dosage: UNK

REACTIONS (2)
  - Cerebral hypoperfusion [Recovering/Resolving]
  - Hypotension [Recovered/Resolved]

NARRATIVE: CASE EVENT DATE: 20230523
